FAERS Safety Report 25851044 (Version 1)
Quarter: 2025Q3

REPORT INFORMATION
  Report Type: Spontaneous
  Country: ID (occurrence: ID)
  Receive Date: 20250926
  Receipt Date: 20250926
  Transmission Date: 20251020
  Serious: Yes (Other)
  Sender: ACCORD
  Company Number: ID-MLMSERVICE-20250910-PI642322-00123-1

PATIENT
  Age: 43 Year
  Sex: Female

DRUGS (2)
  1. DOCETAXEL [Suspect]
     Active Substance: DOCETAXEL
     Indication: Invasive ductal breast carcinoma
  2. DOXORUBICIN [Suspect]
     Active Substance: DOXORUBICIN
     Indication: Invasive ductal breast carcinoma

REACTIONS (3)
  - Cardiac failure chronic [Unknown]
  - Cardiotoxicity [Unknown]
  - Cardiac ventricular thrombosis [Unknown]
